FAERS Safety Report 4657589-7 (Version None)
Quarter: 2005Q2

REPORT INFORMATION
  Report Type: 
  Country: None (occurrence: None)
  Receive Date: 20050509
  Receipt Date: 20050509
  Transmission Date: 20051028
  Serious: Yes (Life-Threatening, Hospitalization)
  Sender: FDA-Public Use
  Company Number: None

PATIENT
  Age: 34 Year
  Sex: Female
  Weight: 63.5036 kg

DRUGS (1)
  1. MISOPROSTOL [Suspect]
     Dosage: 2   25 MCG VAGINAL
     Route: 067
     Dates: start: 20050319, end: 20050319

REACTIONS (5)
  - DISSEMINATED INTRAVASCULAR COAGULATION [None]
  - OFF LABEL USE [None]
  - POSTPARTUM HAEMORRHAGE [None]
  - SHOCK [None]
  - THERAPY NON-RESPONDER [None]
